FAERS Safety Report 13890077 (Version 3)
Quarter: 2017Q4

REPORT INFORMATION
  Report Type: Spontaneous
  Country: US (occurrence: US)
  Receive Date: 20170822
  Receipt Date: 20171023
  Transmission Date: 20180320
  Serious: No
  Sender: FDA-Public Use
  Company Number: US-GLAXOSMITHKLINE-US2017128616

PATIENT
  Age: 68 Year
  Sex: Female

DRUGS (2)
  1. PEPCID [Concomitant]
     Active Substance: FAMOTIDINE
  2. FLOVENT [Suspect]
     Active Substance: FLUTICASONE PROPIONATE
     Indication: ASTHMA
     Dosage: 2 PUFF(S), BID
     Route: 055
     Dates: start: 201603

REACTIONS (7)
  - Cough [Not Recovered/Not Resolved]
  - Product quality issue [Unknown]
  - Endoscopy [Recovered/Resolved]
  - Candida infection [Recovering/Resolving]
  - Wrong technique in device usage process [Unknown]
  - Underdose [Unknown]
  - Dysphonia [Recovering/Resolving]

NARRATIVE: CASE EVENT DATE: 201708
